FAERS Safety Report 23116253 (Version 5)
Quarter: 2024Q1

REPORT INFORMATION
  Report Type: Spontaneous
  Country: US (occurrence: US)
  Receive Date: 20231027
  Receipt Date: 20240130
  Transmission Date: 20240410
  Serious: Yes (Other)
  Sender: FDA-Public Use
  Company Number: US-PFIZER INC-PV202300144201

PATIENT
  Age: 47 Year
  Sex: Male
  Weight: 79.365 kg

DRUGS (3)
  1. BOSULIF [Suspect]
     Active Substance: BOSUTINIB MONOHYDRATE
     Dosage: 400 MG (1 TABLET 400 MG)
  2. BOSULIF [Suspect]
     Active Substance: BOSUTINIB MONOHYDRATE
     Dosage: 400 MG, DAILY (4 TABLETS OF THE 100 MG TABLETS, TAKE WITH FOOD)
     Route: 048
     Dates: start: 202212
  3. BOSULIF [Suspect]
     Active Substance: BOSUTINIB MONOHYDRATE
     Dosage: 400MG, DAILY
     Route: 048

REACTIONS (1)
  - Cardiac operation [Unknown]
